FAERS Safety Report 5503948-X (Version None)
Quarter: 2007Q4

REPORT INFORMATION
  Report Type: 
  Country: None (occurrence: None)
  Receive Date: 20071030
  Receipt Date: 20071030
  Transmission Date: 20080405
  Serious: Yes (Death, Hospitalization)
  Sender: FDA-Public Use
  Company Number: None

PATIENT
  Age: 65 Year
  Sex: Male
  Weight: 74.8435 kg

DRUGS (1)
  1. WARFARIN SODIUM [Suspect]
     Indication: CEREBROVASCULAR ACCIDENT
     Dosage: 2.5MG  HS  PO
     Route: 048
     Dates: start: 20050218, end: 20070324

REACTIONS (4)
  - AGITATION [None]
  - CONFUSIONAL STATE [None]
  - FALL [None]
  - SUBDURAL HAEMATOMA [None]
